FAERS Safety Report 22208697 (Version 1)
Quarter: 2023Q2

REPORT INFORMATION
  Report Type: Spontaneous
  Country: US (occurrence: None)
  Receive Date: 20230413
  Receipt Date: 20230413
  Transmission Date: 20230722
  Serious: Yes (Death)
  Sender: FDA-Public Use
  Company Number: None

PATIENT
  Age: 77 Year
  Sex: Female

DRUGS (1)
  1. SILDENAFIL [Suspect]
     Active Substance: SILDENAFIL
     Dosage: FREQUENCY : TWICE A DAY;?
     Route: 048

REACTIONS (1)
  - Death [None]

NARRATIVE: CASE EVENT DATE: 20221030
